FAERS Safety Report 14934594 (Version 2)
Quarter: 2018Q2

REPORT INFORMATION
  Report Type: Spontaneous
  Country: US (occurrence: US)
  Receive Date: 20180524
  Receipt Date: 20180622
  Transmission Date: 20180711
  Serious: No
  Sender: FDA-Public Use
  Company Number: US-TEVA-2018-US-896217

PATIENT
  Age: 43 Year
  Sex: Female

DRUGS (1)
  1. COPAXONE [Suspect]
     Active Substance: GLATIRAMER ACETATE
     Indication: MULTIPLE SCLEROSIS
     Route: 058
     Dates: start: 20180425

REACTIONS (6)
  - Pruritus [Unknown]
  - Immediate post-injection reaction [Unknown]
  - Erythema [Unknown]
  - Hypersensitivity [Unknown]
  - Rash generalised [Unknown]
  - Flushing [Unknown]

NARRATIVE: CASE EVENT DATE: 20180425
